FAERS Safety Report 24655104 (Version 2)
Quarter: 2024Q4

REPORT INFORMATION
  Report Type: Spontaneous
  Country: CA (occurrence: CA)
  Receive Date: 20241123
  Receipt Date: 20241219
  Transmission Date: 20250115
  Serious: Yes (Other)
  Sender: CELLTRION
  Company Number: CA-PFIZER INC-202400265698

PATIENT

DRUGS (4)
  1. INFLECTRA [Suspect]
     Active Substance: INFLIXIMAB-DYYB
     Indication: Crohn^s disease
     Dosage: 10 MG/KG, (600 MG- INDUCTION WEEKS 0, 2, 6 MAINTENANCE Q 6 WEEKS)
     Route: 042
     Dates: start: 20241031
  2. INFLECTRA [Suspect]
     Active Substance: INFLIXIMAB-DYYB
     Dosage: 600 MG, AFTER 1 WEEKS 6 DAYS (INDUCTION WEEK 2), (10MG/KG- INDUCTION WEEKS 0, 2, 6 THEN Q6 WEEKS)
     Route: 042
     Dates: start: 20241113
  3. INFLECTRA [Suspect]
     Active Substance: INFLIXIMAB-DYYB
     Dosage: 600 MG, 3 WEEKS AND 6 DAYS (WEEK 6) (10MG/KG, 600 MG- INDUCTION WEEKS 0, 2, 6 MAINTENANCE Q 6 WEEKS)
     Route: 042
     Dates: start: 20241210
  4. RIFAMPIN [Concomitant]
     Active Substance: RIFAMPIN
     Indication: Interferon gamma release assay positive
     Dosage: UNK

REACTIONS (4)
  - Fistula [Recovered/Resolved]
  - Anal fissure [Not Recovered/Not Resolved]
  - Off label use [Unknown]
  - Off label use [Unknown]

NARRATIVE: CASE EVENT DATE: 20240101
